FAERS Safety Report 10686052 (Version 3)
Quarter: 2015Q2

REPORT INFORMATION
  Report Type: Spontaneous
  Country: IT (occurrence: IT)
  Receive Date: 20141231
  Receipt Date: 20150617
  Transmission Date: 20150821
  Serious: Yes (Death, Other)
  Sender: FDA-Public Use
  Company Number: IT-CELGENE-083-50794-12091563

PATIENT

DRUGS (1)
  1. VIDAZA [Suspect]
     Active Substance: AZACITIDINE
     Indication: MYELODYSPLASTIC SYNDROME
     Route: 065

REACTIONS (8)
  - Infection [Fatal]
  - Adverse event [Unknown]
  - Myeloproliferative disorder [Unknown]
  - Haemorrhage [Fatal]
  - Acute myeloid leukaemia [Fatal]
  - Myocardial infarction [Fatal]
  - Myelodysplastic syndrome [Unknown]
  - Cachexia [Fatal]
